FAERS Safety Report 25542725 (Version 1)
Quarter: 2025Q3

REPORT INFORMATION
  Report Type: Report from Study
  Country: US (occurrence: US)
  Receive Date: 20250711
  Receipt Date: 20250711
  Transmission Date: 20251021
  Serious: No
  Sender: BridgeBio Pharma
  Company Number: US-BRIDGEBIO-25US000935

PATIENT

DRUGS (18)
  1. ACORAMIDIS [Suspect]
     Active Substance: ACORAMIDIS
     Indication: Cardiac amyloidosis
     Dosage: 2 DOSAGE FORM, BID
     Route: 048
     Dates: start: 20250617
  2. AMIODARONE [Concomitant]
     Active Substance: AMIODARONE
     Indication: Product used for unknown indication
  3. CHOLINE ALFOSCERATE [Concomitant]
     Active Substance: CHOLINE ALFOSCERATE
     Indication: Product used for unknown indication
  4. CINNAMON [CINNAMOMUM VERUM] [Concomitant]
     Indication: Product used for unknown indication
  5. ENTRESTO [Concomitant]
     Active Substance: SACUBITRIL\VALSARTAN
     Indication: Product used for unknown indication
  6. GINGER [Concomitant]
     Active Substance: GINGER
     Indication: Product used for unknown indication
  7. GLIMEPIRIDE [Concomitant]
     Active Substance: GLIMEPIRIDE
     Indication: Product used for unknown indication
  8. JARDIANCE [Concomitant]
     Active Substance: EMPAGLIFLOZIN
     Indication: Product used for unknown indication
  9. MAGNESIUM ASPARTATE [Concomitant]
     Active Substance: MAGNESIUM ASPARTATE
     Indication: Product used for unknown indication
  10. METOPROLOL [Concomitant]
     Active Substance: METOPROLOL
     Indication: Product used for unknown indication
  11. MINERALS\VITAMINS [Concomitant]
     Active Substance: MINERALS\VITAMINS
     Indication: Product used for unknown indication
  12. SPIRONOLACTONE [Concomitant]
     Active Substance: SPIRONOLACTONE
     Indication: Product used for unknown indication
  13. TORSEMIDE [Concomitant]
     Active Substance: TORSEMIDE
     Indication: Product used for unknown indication
  14. HERBALS\TURMERIC [Concomitant]
     Active Substance: HERBALS\TURMERIC
     Indication: Product used for unknown indication
  15. VITAMIN D3 [Concomitant]
     Active Substance: CHOLECALCIFEROL
     Indication: Product used for unknown indication
  16. VITAMIN E [Concomitant]
     Active Substance: .ALPHA.-TOCOPHEROL
     Indication: Product used for unknown indication
  17. MENATETRENONE [Concomitant]
     Active Substance: MENATETRENONE
     Indication: Product used for unknown indication
  18. ZINC ACETATE [Concomitant]
     Active Substance: ZINC ACETATE
     Indication: Product used for unknown indication

REACTIONS (1)
  - Abdominal discomfort [Recovered/Resolved]
